FAERS Safety Report 5043618-8 (Version None)
Quarter: 2006Q2

REPORT INFORMATION
  Report Type: 
  Country: None (occurrence: None)
  Receive Date: 20060628
  Receipt Date: 20060619
  Transmission Date: 20061013
  Serious: Yes (Hospitalization)
  Sender: FDA-Public Use
  Company Number: HQWYE280920JUN06

PATIENT
  Age: 66 Year
  Sex: Female

DRUGS (1)
  1. TYGACIL [Suspect]
     Indication: PYREXIA
     Dosage: 100 MG LOADING DOSE THEN 50 MG EVERY 12 HOURS, INTRAVENOUS
     Route: 042
     Dates: start: 20060603, end: 20060607

REACTIONS (4)
  - ALANINE AMINOTRANSFERASE INCREASED [None]
  - ASPARTATE AMINOTRANSFERASE INCREASED [None]
  - BLOOD ALKALINE PHOSPHATASE INCREASED [None]
  - GAMMA-GLUTAMYLTRANSFERASE INCREASED [None]
